FAERS Safety Report 5140304-0 (Version None)
Quarter: 2006Q4

REPORT INFORMATION
  Report Type: 
  Country: None (occurrence: None)
  Receive Date: 20061031
  Receipt Date: 20061024
  Transmission Date: 20070319
  Serious: Yes (Other)
  Sender: FDA-Public Use
  Company Number: GB-GLAXOSMITHKLINE-B0444262A

PATIENT
  Sex: Male

DRUGS (2)
  1. ZYBAN [Suspect]
     Route: 065
  2. VENLAFAXIINE HCL [Suspect]
     Route: 065

REACTIONS (2)
  - INFERTILITY [None]
  - SPERM COUNT DECREASED [None]
